FAERS Safety Report 5463553-0 (Version None)
Quarter: 2007Q3

REPORT INFORMATION
  Report Type: 
  Country: None (occurrence: None)
  Receive Date: 20070920
  Receipt Date: 20070911
  Transmission Date: 20080115
  Serious: Yes (Other)
  Sender: FDA-Public Use
  Company Number: CA-PFIZER INC-2007077037

PATIENT
  Age: 65 Year
  Sex: Female

DRUGS (3)
  1. DETROL [Suspect]
     Route: 048
     Dates: start: 20070101, end: 20070901
  2. LOVENOX [Concomitant]
  3. ALL OTHER THERAPEUTIC PRODUCTS [Concomitant]

REACTIONS (3)
  - ABASIA [None]
  - LIMB DISCOMFORT [None]
  - PAIN IN EXTREMITY [None]
